FAERS Safety Report 23143852 (Version 1)
Quarter: 2023Q4

REPORT INFORMATION
  Report Type: Spontaneous
  Country: US (occurrence: None)
  Receive Date: 20231103
  Receipt Date: 20231103
  Transmission Date: 20240110
  Serious: Yes (unspecified)
  Sender: FDA-Public Use
  Company Number: None

PATIENT
  Age: 75 Year
  Sex: Female
  Weight: 67.5 kg

DRUGS (5)
  1. EQUATE LUBRICATING EYE DROPS [Suspect]
     Active Substance: CARBOXYMETHYLCELLULOSE SODIUM\GLYCERIN
     Indication: Eye lubrication therapy
     Dosage: FREQUENCY : TWICE A DAY;?
     Route: 047
     Dates: start: 20231001, end: 20231101
  2. LOSARTAN [Concomitant]
     Active Substance: LOSARTAN
  3. vid d [Concomitant]
  4. FISH OIL [Concomitant]
     Active Substance: FISH OIL
  5. MAGNESIUM OXIDE [Concomitant]
     Active Substance: MAGNESIUM OXIDE

REACTIONS (1)
  - Eye discharge [None]

NARRATIVE: CASE EVENT DATE: 20231001
